FAERS Safety Report 4446329-2 (Version None)
Quarter: 2004Q3

REPORT INFORMATION
  Report Type: 
  Country: None (occurrence: None)
  Receive Date: 20040907
  Receipt Date: 20040825
  Transmission Date: 20050211
  Serious: Yes (Hospitalization, Other)
  Sender: FDA-Public Use
  Company Number: 2004060194

PATIENT
  Age: 56 Year
  Sex: Female
  Weight: 77.3 kg

DRUGS (6)
  1. GEODON [Suspect]
     Indication: AGITATION
     Dosage: SEE IMAGE
     Dates: start: 20040821, end: 20040801
  2. GEODON [Suspect]
     Indication: PSYCHOTIC DISORDER
     Dosage: SEE IMAGE
     Dates: start: 20040821, end: 20040801
  3. GEODON [Suspect]
     Indication: AGITATION
     Dosage: SEE IMAGE
     Dates: start: 20040801, end: 20040824
  4. GEODON [Suspect]
     Indication: PSYCHOTIC DISORDER
     Dosage: SEE IMAGE
     Dates: start: 20040801, end: 20040824
  5. LEVOFLOXACIN [Concomitant]
  6. ZOLPIDEM TARTRATE [Concomitant]

REACTIONS (2)
  - NEUROLEPTIC MALIGNANT SYNDROME [None]
  - PSYCHOTIC DISORDER [None]
